FAERS Safety Report 7304320-2 (Version None)
Quarter: 2011Q1

REPORT INFORMATION
  Report Type: 
  Country: None (occurrence: None)
  Receive Date: 20110221
  Receipt Date: 20110208
  Transmission Date: 20110831
  Serious: Yes (Death, Other)
  Sender: FDA-Public Use
  Company Number: US-BAYER-201032468NA

PATIENT
  Sex: Female

DRUGS (6)
  1. YASMIN [Suspect]
     Indication: PRODUCT USED FOR UNKNOWN INDICATION
     Dosage: UNK
     Route: 048
     Dates: start: 20060112
  2. YAZ [Suspect]
     Dosage: UNK
     Route: 048
     Dates: start: 20090710, end: 20090908
  3. YASMIN [Suspect]
     Dosage: UNK
     Route: 048
     Dates: start: 20060328
  4. OCELLA [Suspect]
     Indication: PRODUCT USED FOR UNKNOWN INDICATION
     Dosage: UNK
     Route: 048
  5. YASMIN [Suspect]
     Dosage: UNK
     Route: 048
     Dates: start: 20070619
  6. YAZ [Suspect]
     Indication: PRODUCT USED FOR UNKNOWN INDICATION
     Dosage: UNK
     Route: 048
     Dates: start: 20080718

REACTIONS (12)
  - CHOLECYSTITIS CHRONIC [None]
  - GALLBLADDER DISORDER [None]
  - EMBOLISM ARTERIAL [None]
  - HYPERTENSION [None]
  - THROMBOPHLEBITIS [None]
  - PULMONARY EMBOLISM [None]
  - DEEP VEIN THROMBOSIS [None]
  - MYOCARDIAL INFARCTION [None]
  - CEREBRAL THROMBOSIS [None]
  - BENIGN HEPATIC NEOPLASM [None]
  - CEREBRAL HAEMORRHAGE [None]
  - HEPATIC ADENOMA [None]
